FAERS Safety Report 10231860 (Version 2)
Quarter: 2014Q2

REPORT INFORMATION
  Report Type: Spontaneous
  Country: US (occurrence: US)
  Receive Date: 20140612
  Receipt Date: 20140612
  Transmission Date: 20141212
  Serious: No
  Sender: FDA-Public Use
  Company Number: US-ASTRAZENECA-2014SE21147

PATIENT
  Age: 44 Year
  Sex: Female
  Weight: 64.9 kg

DRUGS (10)
  1. NEXIUM [Suspect]
     Indication: GASTROOESOPHAGEAL REFLUX DISEASE
     Route: 048
     Dates: start: 2008, end: 2012
  2. NEXIUM [Suspect]
     Indication: OESOPHAGITIS
     Route: 048
     Dates: start: 2008, end: 2012
  3. NEXIUM [Suspect]
     Indication: GASTRITIS
     Route: 048
     Dates: start: 2008, end: 2012
  4. NEXIUM [Suspect]
     Indication: GASTROOESOPHAGEAL REFLUX DISEASE
     Route: 048
     Dates: start: 2008, end: 2012
  5. NEXIUM [Suspect]
     Indication: OESOPHAGITIS
     Route: 048
     Dates: start: 2008, end: 2012
  6. NEXIUM [Suspect]
     Indication: GASTRITIS
     Route: 048
     Dates: start: 2008, end: 2012
  7. ADVAIR [Concomitant]
     Indication: ASTHMA
     Route: 048
     Dates: start: 2002
  8. BIRTH CONTROL PILL [Concomitant]
     Indication: MENOPAUSE
     Dosage: 1 TAB DAILY
     Route: 048
  9. TESSALON PERLES [Concomitant]
     Indication: COUGH
  10. VALTREX [Concomitant]
     Indication: ORAL HERPES

REACTIONS (8)
  - Blood iron increased [Unknown]
  - Osteoarthritis [Unknown]
  - Blood iron decreased [Unknown]
  - Anxiety [Unknown]
  - Haemangioma of skin [Unknown]
  - Hypertension [Unknown]
  - Drug dose omission [Unknown]
  - Off label use [Unknown]
